FAERS Safety Report 19962167 (Version 2)
Quarter: 2021Q4

REPORT INFORMATION
  Report Type: Spontaneous
  Country: JP (occurrence: JP)
  Receive Date: 20211018
  Receipt Date: 20211113
  Transmission Date: 20220303
  Serious: Yes (Death, Life-Threatening, Hospitalization)
  Sender: FDA-Public Use
  Company Number: JP-CHUGAI-2021022111

PATIENT
  Age: 67 Year
  Sex: Female
  Weight: 37.9 kg

DRUGS (4)
  1. AVASTIN [Suspect]
     Active Substance: BEVACIZUMAB
     Indication: Rectal cancer
     Route: 041
     Dates: start: 20210511, end: 20210511
  2. UFT [Concomitant]
     Active Substance: TEGAFUR\URACIL
     Indication: Rectal cancer
     Route: 048
     Dates: start: 20210511, end: 20210608
  3. LEUCOVORIN CALCIUM [Concomitant]
     Active Substance: LEUCOVORIN CALCIUM
     Indication: Rectal cancer
     Dosage: UNK
     Route: 048
     Dates: start: 20210511, end: 20210608
  4. URSODIOL [Concomitant]
     Active Substance: URSODIOL
     Dosage: UNK
     Route: 048
     Dates: start: 20210511, end: 20210608

REACTIONS (2)
  - Female genital tract fistula [Recovered/Resolved with Sequelae]
  - Rectal cancer [Fatal]

NARRATIVE: CASE EVENT DATE: 20210928
